FAERS Safety Report 5270533-7 (Version None)
Quarter: 2007Q1

REPORT INFORMATION
  Report Type: 
  Country: None (occurrence: None)
  Receive Date: 20070315
  Receipt Date: 20070227
  Transmission Date: 20070707
  Serious: Yes (Other)
  Sender: FDA-Public Use
  Company Number: DSA_29480_2007

PATIENT
  Age: 75 Year
  Sex: Male
  Weight: 65.318 kg

DRUGS (3)
  1. NIFEDIAC CC [Suspect]
     Indication: BLOOD PRESSURE
     Dosage: 30 MG ONCE PO
     Route: 048
     Dates: start: 20070219, end: 20070219
  2. NORVASC [Concomitant]
  3. LIPITOR [Concomitant]

REACTIONS (8)
  - ABDOMINAL PAIN UPPER [None]
  - AGITATION [None]
  - ASTHENIA [None]
  - CONFUSIONAL STATE [None]
  - FLATULENCE [None]
  - NERVOUSNESS [None]
  - TREMOR [None]
  - VISUAL ACUITY REDUCED [None]
